FAERS Safety Report 8521835-X (Version None)
Quarter: 2012Q3

REPORT INFORMATION
  Report Type: 
  Country: None (occurrence: None)
  Receive Date: 20120719
  Receipt Date: 20120420
  Transmission Date: 20120928
  Serious: Yes (Other)
  Sender: FDA-Public Use
  Company Number: US-BRISTOL-MYERS SQUIBB COMPANY-16539058

PATIENT
  Age: 70 Year
  Sex: Female
  Weight: 62 kg

DRUGS (7)
  1. LEXAPRO [Concomitant]
  2. LORTAB [Concomitant]
  3. MORPHINE SULFATE [Concomitant]
     Dosage: MORPHINE SR (SUSTAINED RELEASE)
  4. YERVOY [Suspect]
     Indication: MALIGNANT MELANOMA
     Dosage: DOSE:190MG(3MG/KG),NO OF DOSES:1
     Dates: start: 20120328
  5. HYDROCHLOROTHIAZIDE [Concomitant]
  6. ALTACE [Concomitant]
  7. SYNTHROID [Concomitant]

REACTIONS (3)
  - BLINDNESS UNILATERAL [None]
  - BLOOD THYROID STIMULATING HORMONE INCREASED [None]
  - VISION BLURRED [None]
